FAERS Safety Report 6454200-X (Version None)
Quarter: 2009Q4

REPORT INFORMATION
  Report Type: 
  Country: None (occurrence: None)
  Receive Date: 20091124
  Receipt Date: 20091110
  Transmission Date: 20100525
  Serious: Yes (Hospitalization)
  Sender: FDA-Public Use
  Company Number: DE-MYLANLABS-2009S1005750

PATIENT
  Age: 60 Year
  Sex: Female
  Weight: 74 kg

DRUGS (6)
  1. IBUPROFEN [Suspect]
     Indication: PAIN
     Dates: start: 20081001, end: 20090102
  2. CELEBREX [Suspect]
     Indication: PAIN
     Route: 048
     Dates: start: 20081001, end: 20090102
  3. PANTOZOL [Concomitant]
     Indication: PROPHYLAXIS AGAINST GASTROINTESTINAL ULCER
     Route: 048
     Dates: start: 20081001
  4. VALORON /00205402/ [Concomitant]
     Indication: PAIN
     Route: 048
     Dates: start: 20081001
  5. FALITHROM [Concomitant]
     Indication: ATRIAL FIBRILLATION
     Route: 048
     Dates: start: 20081014, end: 20090213
  6. BISOPROLOL [Concomitant]
     Indication: HYPERTENSION
     Route: 048
     Dates: start: 19890101

REACTIONS (1)
  - COLITIS [None]
